FAERS Safety Report 9547100 (Version 1)
Quarter: 2013Q3

REPORT INFORMATION
  Report Type: Spontaneous
  Country: GR (occurrence: GR)
  Receive Date: 20130924
  Receipt Date: 20130924
  Transmission Date: 20140515
  Serious: Yes (Other)
  Sender: FDA-Public Use
  Company Number: PHHY2013GR105813

PATIENT
  Age: 71 Year
  Sex: Female

DRUGS (1)
  1. TASIGNA [Suspect]
     Route: 048

REACTIONS (2)
  - Ascites [Unknown]
  - Abdominal distension [Unknown]
